FAERS Safety Report 9457576 (Version 1)
Quarter: 2013Q3

REPORT INFORMATION
  Report Type: Spontaneous
  Country: DE (occurrence: None)
  Receive Date: 20130812
  Receipt Date: 20130812
  Transmission Date: 20140515
  Serious: Yes (Hospitalization)
  Sender: FDA-Public Use
  Company Number: AG-2012-1497

PATIENT
  Age: 67 Year
  Sex: Male
  Weight: 85 kg

DRUGS (5)
  1. CHLORAMBUCIL [Suspect]
     Indication: CHRONIC LYMPHOCYTIC LEUKAEMIA
     Dosage: DAY1 AND DAY 15 OF 28 DAY CYCLE (22 MILLIGRAM, 22 MG ON DAY 1 AND DAY 15 PER 28 DAYS)
     Route: 048
     Dates: start: 20110906
  2. OBINUTUZUMAB [Suspect]
     Dosage: 1 IN 28 DAYS) (NOT OTHERWISE SPECIFIED)
     Route: 042
     Dates: start: 20110906
  3. DIOVAN [Concomitant]
  4. BELOC-ZOK [Concomitant]
  5. CARMEN [Concomitant]

REACTIONS (1)
  - Pneumonia [None]
